FAERS Safety Report 6275249-6 (Version None)
Quarter: 2009Q3

REPORT INFORMATION
  Report Type: 
  Country: None (occurrence: None)
  Receive Date: 20090721
  Receipt Date: 20090713
  Transmission Date: 20100115
  Serious: Yes (Congenital Anomaly)
  Sender: FDA-Public Use
  Company Number: A0679414A

PATIENT
  Sex: Male

DRUGS (7)
  1. PAXIL CR [Suspect]
     Indication: ILL-DEFINED DISORDER
     Dosage: 25MG PER DAY
     Dates: start: 20051101, end: 20060801
  2. LISINOPRIL [Concomitant]
     Dates: start: 20050101, end: 20070101
  3. HYDROCORTISONE [Concomitant]
     Dates: start: 20060101
  4. INSULIN [Concomitant]
  5. TYLENOL (CAPLET) [Concomitant]
  6. AVANDAMET [Concomitant]
  7. IRON [Concomitant]

REACTIONS (4)
  - CARDIAC MURMUR [None]
  - COLLAPSE OF LUNG [None]
  - DRUG EXPOSURE DURING PREGNANCY [None]
  - PULMONARY HYPERTENSION [None]
